FAERS Safety Report 8231457-6 (Version None)
Quarter: 2012Q1

REPORT INFORMATION
  Report Type: 
  Country: None (occurrence: None)
  Receive Date: 20120323
  Receipt Date: 20120320
  Transmission Date: 20120608
  Serious: Yes (Hospitalization)
  Sender: FDA-Public Use
  Company Number: US-B.I. PHARMACEUTICALS,INC./RIDGEFIELD-2012-BP-05256BP

PATIENT
  Sex: Male

DRUGS (3)
  1. SPIRONOLACTONE [Concomitant]
     Indication: OEDEMA
     Dosage: 25 MG
     Route: 048
  2. ZOCOR [Concomitant]
     Indication: BLOOD CHOLESTEROL INCREASED
     Dosage: 20 MG
     Route: 048
  3. SPIRIVA [Suspect]
     Indication: CHRONIC OBSTRUCTIVE PULMONARY DISEASE
     Dosage: 18 MCG
     Route: 055
     Dates: start: 20111201

REACTIONS (2)
  - DYSPNOEA [None]
  - CARDIAC FAILURE CONGESTIVE [None]
